FAERS Safety Report 5233851-4 (Version None)
Quarter: 2007Q1

REPORT INFORMATION
  Report Type: 
  Country: None (occurrence: None)
  Receive Date: 20061208
  Receipt Date: 20060330
  Transmission Date: 20070707
  Serious: Yes (Other)
  Sender: FDA-Public Use
  Company Number: 2006UW04528

PATIENT
  Age: 78 Year
  Sex: Male
  Weight: 102.05 kg

DRUGS (6)
  1. CRESTOR [Suspect]
     Indication: BLOOD CHOLESTEROL INCREASED
     Dosage: 5 MG HS PO
     Route: 047
  2. PLAVIX [Concomitant]
  3. TOPROL-XL [Concomitant]
  4. DIOVANE [Concomitant]
  5. ASPIRIN [Concomitant]
  6. KRISTALOSE [Concomitant]

REACTIONS (5)
  - INSOMNIA [None]
  - MYALGIA [None]
  - NAUSEA [None]
  - NECK PAIN [None]
  - NOCTURIA [None]
